FAERS Safety Report 16823487 (Version 5)
Quarter: 2020Q1

REPORT INFORMATION
  Report Type: Spontaneous
  Country: US (occurrence: US)
  Receive Date: 20190918
  Receipt Date: 20200214
  Transmission Date: 20200409
  Serious: Yes (Hospitalization, Other)
  Sender: FDA-Public Use
  Company Number: US-LEXICON PHARMACEUTICALS, INC-19-1606-00876

PATIENT
  Age: 82 Year
  Sex: Female

DRUGS (15)
  1. ASA [Concomitant]
     Active Substance: ASPIRIN
  2. SIMVASTATIN. [Concomitant]
     Active Substance: SIMVASTATIN
  3. TELOTRISTAT ETHYL [Suspect]
     Active Substance: TELOTRISTAT ETHYL
     Indication: CARCINOID SYNDROME
     Route: 048
     Dates: start: 20190905
  4. TEMODAR [Concomitant]
     Active Substance: TEMOZOLOMIDE
  5. AMLODIPINE [Concomitant]
     Active Substance: AMLODIPINE BESYLATE
  6. PILOCARPINE. [Concomitant]
     Active Substance: PILOCARPINE
  7. LOSARTAN. [Concomitant]
     Active Substance: LOSARTAN
  8. FAMOTIDINE. [Concomitant]
     Active Substance: FAMOTIDINE
  9. TEGRETOL [Concomitant]
     Active Substance: CARBAMAZEPINE
  10. DENOSUMAB [Concomitant]
     Active Substance: DENOSUMAB
  11. ZOFRAN [Concomitant]
     Active Substance: ONDANSETRON HYDROCHLORIDE
  12. LANREOTIDE [Concomitant]
     Active Substance: LANREOTIDE
  13. CAPECITABINE. [Concomitant]
     Active Substance: CAPECITABINE
  14. CALCIUM/VITAMIN D [Concomitant]
     Active Substance: CALCIUM\VITAMIN D
  15. XELODA [Concomitant]
     Active Substance: CAPECITABINE

REACTIONS (5)
  - Blood pressure decreased [Recovered/Resolved]
  - Off label use [Not Recovered/Not Resolved]
  - Product dose omission [Recovered/Resolved]
  - Haematoma [Recovering/Resolving]
  - Disease progression [Not Recovered/Not Resolved]

NARRATIVE: CASE EVENT DATE: 20191205
